FAERS Safety Report 9517239 (Version 1)
Quarter: 2013Q3

REPORT INFORMATION
  Report Type: Report from Study
  Country: US (occurrence: US)
  Receive Date: 20130911
  Receipt Date: 20130911
  Transmission Date: 20140515
  Serious: Yes (Other)
  Sender: FDA-Public Use
  Company Number: US-ROCHE-1273692

PATIENT
  Age: 69 Year
  Sex: Female
  Weight: 61.29 kg

DRUGS (7)
  1. RITUXAN [Suspect]
     Indication: RHEUMATOID ARTHRITIS
     Dosage: 2 INF Q2WX6MO
     Route: 042
     Dates: start: 20130903
  2. SOLU-MEDROL [Suspect]
     Indication: RHEUMATOID ARTHRITIS
     Dosage: 60MG/100MG
     Route: 042
     Dates: start: 20130903
  3. BENADRYL (UNITED STATES) [Concomitant]
  4. BYSTOLIC [Concomitant]
     Dosage: 5 MG/2.5 MG
     Route: 048
  5. LOTREL [Concomitant]
     Dosage: 5-10 MG
     Route: 048
  6. LEVOTHYROXINE [Concomitant]
     Route: 048
  7. HYDROCODONE HCL [Concomitant]
     Dosage: 5/325 MG
     Route: 048

REACTIONS (3)
  - Abdominal pain upper [Recovered/Resolved]
  - Rectal haemorrhage [Recovered/Resolved]
  - Chest discomfort [Recovered/Resolved]
